FAERS Safety Report 4925176-9 (Version None)
Quarter: 2006Q1

REPORT INFORMATION
  Report Type: 
  Country: None (occurrence: None)
  Receive Date: 20060228
  Receipt Date: 20060104
  Transmission Date: 20060701
  Serious: No
  Sender: FDA-Public Use
  Company Number: US-GLAXOSMITHKLINE-A0587738A

PATIENT
  Age: 59 Year
  Sex: Male
  Weight: 72.7 kg

DRUGS (4)
  1. AVODART [Suspect]
     Indication: BENIGN PROSTATIC HYPERPLASIA
     Route: 048
     Dates: start: 20040326
  2. ALLOPURINOL [Concomitant]
  3. IBUPROFEN [Concomitant]
  4. LEVITRA [Concomitant]

REACTIONS (2)
  - GLOSSODYNIA [None]
  - PHARMACEUTICAL PRODUCT COMPLAINT [None]
